FAERS Safety Report 8812271 (Version 2)
Quarter: 2014Q3

REPORT INFORMATION
  Report Type: Report from Study
  Country: US (occurrence: US)
  Receive Date: 20120927
  Receipt Date: 20140902
  Transmission Date: 20150326
  Serious: Yes (Death, Other)
  Sender: FDA-Public Use
  Company Number: US-ROCHE-1124590

PATIENT
  Sex: Male
  Weight: 78 kg

DRUGS (4)
  1. AVASTIN [Suspect]
     Active Substance: BEVACIZUMAB
     Indication: MALIGNANT RESPIRATORY TRACT NEOPLASM
     Dosage: DOSES GIVEN ON 18/AUG, 08/SEP (YEAR UNSPECIFIED) AND 28/SEP/2005
     Route: 065
  2. AVASTIN [Suspect]
     Active Substance: BEVACIZUMAB
     Route: 042
  3. CARBOPLATIN. [Concomitant]
     Active Substance: CARBOPLATIN
  4. TAXOL [Concomitant]
     Active Substance: PACLITAXEL

REACTIONS (9)
  - Musculoskeletal chest pain [Unknown]
  - Weight decreased [Unknown]
  - Adenocarcinoma [Unknown]
  - Off label use [Unknown]
  - Metastases to bone [Unknown]
  - Chronic obstructive pulmonary disease [Unknown]
  - Death [Fatal]
  - Dyspnoea [Unknown]
  - Cough [Unknown]
